FAERS Safety Report 6140517-5 (Version None)
Quarter: 2009Q1

REPORT INFORMATION
  Report Type: 
  Country: None (occurrence: None)
  Receive Date: 20090331
  Receipt Date: 20090317
  Transmission Date: 20090719
  Serious: Yes (Other)
  Sender: FDA-Public Use
  Company Number: 2009S1005265

PATIENT
  Sex: Male

DRUGS (5)
  1. CARVEDILOL [Suspect]
  2. CYCLOSPORINE [Suspect]
  3. RANOLAZINE [Suspect]
  4. DILTIAZEM [Suspect]
  5. SIMVASTATIN [Suspect]

REACTIONS (1)
  - RHABDOMYOLYSIS [None]
